FAERS Safety Report 5717422-9 (Version None)
Quarter: 2008Q2

REPORT INFORMATION
  Report Type: 
  Country: None (occurrence: None)
  Receive Date: 20080424
  Receipt Date: 20080424
  Transmission Date: 20081010
  Serious: Yes (Hospitalization)
  Sender: FDA-Public Use
  Company Number: None

PATIENT
  Age: 41 Year
  Sex: Male
  Weight: 134 kg

DRUGS (1)
  1. ZOSYN [Suspect]
     Indication: CELLULITIS
     Dosage: 3.375 GRAMS Q6H IV
     Route: 042
     Dates: start: 20080216, end: 20080220

REACTIONS (1)
  - NEPHRITIS INTERSTITIAL [None]
